FAERS Safety Report 10061331 (Version 1)
Quarter: 2014Q2

REPORT INFORMATION
  Report Type: Spontaneous
  Country: IN (occurrence: IN)
  Receive Date: 20140407
  Receipt Date: 20140407
  Transmission Date: 20141212
  Serious: Yes (Other)
  Sender: FDA-Public Use
  Company Number: IN-009507513-1403IND014539

PATIENT
  Age: 58 Year
  Sex: Female

DRUGS (1)
  1. JANUMET [Suspect]
     Indication: DIABETES MELLITUS
     Dosage: DOSE: 2; (50/1000 MG), BID
     Route: 048
     Dates: end: 20140328

REACTIONS (2)
  - Pruritus generalised [Unknown]
  - Hypersensitivity [Unknown]
